FAERS Safety Report 13965239 (Version 2)
Quarter: 2017Q4

REPORT INFORMATION
  Report Type: Spontaneous
  Country: CO (occurrence: CO)
  Receive Date: 20170913
  Receipt Date: 20171102
  Transmission Date: 20180320
  Serious: Yes (Other)
  Sender: FDA-Public Use
  Company Number: CO-CELLTRION INC.-2017CO011938

PATIENT

DRUGS (2)
  1. REMSIMA [Suspect]
     Active Substance: INFLIXIMAB
     Dosage: 200 MG, 6 WEEKS
     Route: 042
     Dates: start: 20170710, end: 20170710
  2. REMSIMA [Suspect]
     Active Substance: INFLIXIMAB
     Indication: CROHN^S DISEASE
     Dosage: 200 MG, 6 WEEKS
     Route: 042
     Dates: start: 20160518, end: 20160518

REACTIONS (4)
  - Hypersensitivity [Not Recovered/Not Resolved]
  - Arthralgia [Unknown]
  - Inappropriate schedule of drug administration [Unknown]
  - Inflammation [Unknown]

NARRATIVE: CASE EVENT DATE: 20170710
